FAERS Safety Report 4973200-X (Version None)
Quarter: 2006Q2

REPORT INFORMATION
  Report Type: 
  Country: None (occurrence: None)
  Receive Date: 20060414
  Receipt Date: 20050510
  Transmission Date: 20061013
  Serious: Yes (Hospitalization, Disabling)
  Sender: FDA-Public Use
  Company Number: US-MERCK-0505USA01363

PATIENT
  Age: 26 Year
  Sex: Male
  Weight: 85 kg

DRUGS (6)
  1. VIOXX [Suspect]
     Indication: NECK PAIN
     Route: 048
     Dates: start: 20010530, end: 20030101
  2. VIOXX [Suspect]
     Route: 048
     Dates: start: 20010530, end: 20030101
  3. VIOXX [Suspect]
     Route: 048
     Dates: start: 20010530, end: 20030101
  4. VIOXX [Suspect]
     Indication: BACK PAIN
     Route: 048
     Dates: start: 20010530, end: 20030101
  5. VIOXX [Suspect]
     Route: 048
     Dates: start: 20010530, end: 20030101
  6. VIOXX [Suspect]
     Route: 048
     Dates: start: 20010530, end: 20030101

REACTIONS (5)
  - CEREBRAL THROMBOSIS [None]
  - CEREBROVASCULAR ACCIDENT [None]
  - ELECTROCARDIOGRAM T WAVE AMPLITUDE DECREASED [None]
  - HEMIPLEGIA [None]
  - ISCHAEMIC CEREBRAL INFARCTION [None]
